FAERS Safety Report 5889116-0 (Version None)
Quarter: 2008Q3

REPORT INFORMATION
  Report Type: 
  Country: None (occurrence: None)
  Receive Date: 20080919
  Receipt Date: 20080909
  Transmission Date: 20090109
  Serious: Yes (Other)
  Sender: FDA-Public Use
  Company Number: ES-WYE-H06020508

PATIENT
  Age: 79 Year
  Sex: Male

DRUGS (2)
  1. VENLAFAXINE HYDROCHLORIDE [Suspect]
     Indication: DEPRESSION
     Dosage: 13.5 G OVERDOSE AMOUNT
  2. MIRTAZAPINE [Concomitant]
     Dosage: UNKNOWN

REACTIONS (5)
  - BRADYKINESIA [None]
  - DRUG TOXICITY [None]
  - INTENTIONAL OVERDOSE [None]
  - SEROTONIN SYNDROME [None]
  - SUICIDE ATTEMPT [None]
